FAERS Safety Report 4722614-1 (Version None)
Quarter: 2005Q3

REPORT INFORMATION
  Report Type: 
  Country: None (occurrence: None)
  Receive Date: 20050722
  Receipt Date: 20050712
  Transmission Date: 20060218
  Serious: Yes (Other)
  Sender: FDA-Public Use
  Company Number: FR-NOVOPROD-245522

PATIENT
  Age: 52 Year
  Sex: Male
  Weight: 74 kg

DRUGS (7)
  1. NOVOMIX 30 FLEXPEN [Suspect]
     Indication: ILL-DEFINED DISORDER
     Dosage: UNK, UNK
     Dates: start: 20040101
  2. ACTRAPID [Suspect]
     Indication: ILL-DEFINED DISORDER
     Dosage: UNK, UNK
     Dates: start: 20040101
  3. HYPERIUM [Concomitant]
     Dates: start: 20040101
  4. RAMIPRIL [Concomitant]
     Dates: start: 20040101
  5. AMLODIPINE BESYLATE [Concomitant]
     Dates: start: 20040101
  6. TAHOR [Concomitant]
     Dates: start: 20040101
  7. COPRAVEL 300 [Concomitant]
     Dates: start: 20040101

REACTIONS (3)
  - HYPOTENSION [None]
  - THROAT IRRITATION [None]
  - URTICARIA [None]
